FAERS Safety Report 4757398-4 (Version None)
Quarter: 2005Q3

REPORT INFORMATION
  Report Type: 
  Country: None (occurrence: None)
  Receive Date: 20050831
  Receipt Date: 20050818
  Transmission Date: 20060218
  Serious: Yes (Other)
  Sender: FDA-Public Use
  Company Number: US-KINGPHARMUSA00001-K200501095

PATIENT
  Sex: Male
  Weight: 3 kg

DRUGS (1)
  1. PITOCIN [Suspect]
     Dosage: OVER 30 UNITS
     Route: 042
     Dates: start: 20000929, end: 20000929

REACTIONS (10)
  - COGNITIVE DISORDER [None]
  - COORDINATION ABNORMAL [None]
  - DRUG EXPOSURE DURING PREGNANCY [None]
  - DYSKINESIA [None]
  - FALL [None]
  - GAIT DISTURBANCE [None]
  - HEMIPARESIS [None]
  - HYPOTONIA [None]
  - SPEECH DISORDER [None]
  - VISUAL FIELD DEFECT [None]
